FAERS Safety Report 9350716 (Version 1)
Quarter: 2013Q2

REPORT INFORMATION
  Report Type: Spontaneous
  Country: BR (occurrence: BR)
  Receive Date: 20130617
  Receipt Date: 20130617
  Transmission Date: 20140414
  Serious: Yes (Other)
  Sender: FDA-Public Use
  Company Number: PHHY2013BR044608

PATIENT
  Age: 22 Year
  Sex: Male
  Weight: 58 kg

DRUGS (2)
  1. RITALINA [Suspect]
     Indication: ATTENTION DEFICIT/HYPERACTIVITY DISORDER
     Dosage: UNK UKN, UNK
     Route: 048
  2. RITALINA [Suspect]
     Dosage: 1 DF, QD
     Route: 048
     Dates: end: 20130429

REACTIONS (3)
  - Cold sweat [Recovered/Resolved]
  - Drug withdrawal syndrome [Recovered/Resolved]
  - Tremor [Recovered/Resolved]
